FAERS Safety Report 18691728 (Version 1)
Quarter: 2021Q1

REPORT INFORMATION
  Report Type: Spontaneous
  Country: SE (occurrence: SE)
  Receive Date: 20210102
  Receipt Date: 20210102
  Transmission Date: 20210419
  Serious: Yes (Other)
  Sender: FDA-Public Use
  Company Number: SE-SUN PHARMACEUTICAL INDUSTRIES LTD-2020RR-273458

PATIENT
  Sex: Female

DRUGS (4)
  1. MIRTAZAPINE. [Suspect]
     Active Substance: MIRTAZAPINE
     Indication: PRODUCT USED FOR UNKNOWN INDICATION
     Dosage: IT IS NOT POSSIBLE TO FIND OUT IF THE SUSPECTED MEDICINES WERE GIVEN AT THE SAME TIME OR AT DIFFEREN
     Route: 048
  2. ESCITALOPRAM [Suspect]
     Active Substance: ESCITALOPRAM OXALATE
     Indication: PRODUCT USED FOR UNKNOWN INDICATION
     Dosage: IT IS NOT POSSIBLE TO FIND OUT IF THE SUSPECTED MEDICINES WERE GIVEN AT THE SAME TIME OR AT DIFFEREN
     Route: 048
  3. SERTRALINE [Suspect]
     Active Substance: SERTRALINE HYDROCHLORIDE
     Indication: PRODUCT USED FOR UNKNOWN INDICATION
     Dosage: IT IS NOT POSSIBLE TO FIND OUT IF THE SUSPECTED MEDICINES WERE GIVEN AT THE SAME TIME OR AT DIFFEREN
     Route: 048
  4. VENLAFAXINE [Suspect]
     Active Substance: VENLAFAXINE HYDROCHLORIDE
     Indication: PRODUCT USED FOR UNKNOWN INDICATION
     Dosage: IT IS NOT POSSIBLE TO FIND OUT IF THE SUSPECTED MEDICINES WERE GIVEN AT THE SAME TIME OR AT DIFFEREN
     Route: 048

REACTIONS (1)
  - Haemorrhagic diathesis [Recovered/Resolved]
